FAERS Safety Report 9481989 (Version 1)
Quarter: 2013Q3

REPORT INFORMATION
  Report Type: Spontaneous
  Country: BR (occurrence: BR)
  Receive Date: 20130828
  Receipt Date: 20130828
  Transmission Date: 20140515
  Serious: Yes (Other)
  Sender: FDA-Public Use
  Company Number: BR-AMGEN-BRASP2013060171

PATIENT
  Age: 74 Year
  Sex: Female
  Weight: 70 kg

DRUGS (6)
  1. ENBREL [Suspect]
     Indication: RHEUMATOID ARTHRITIS
     Dosage: 50 MG, ONCE WEEKLY
     Route: 058
     Dates: start: 20130620
  2. INSULIN [Concomitant]
     Indication: DIABETES MELLITUS
     Dosage: 18 IU, TWICE A DAY
  3. METHOTREXATE [Concomitant]
     Indication: RHEUMATOID ARTHRITIS
     Dosage: STRENGTH 25 MG
  4. PURAN T4 [Concomitant]
     Indication: HYPOTHYROIDISM
     Dosage: 100 MG, ONCE A DAY
  5. LOSARTAN [Concomitant]
     Indication: HYPERTENSION
     Dosage: 50 MG, ONCE A DAY
  6. AMLODIPINE BESILATE [Concomitant]
     Indication: HYPERTENSION
     Dosage: 5 MG, ONCE A DAY

REACTIONS (4)
  - Pain [Unknown]
  - Productive cough [Unknown]
  - Rash macular [Unknown]
  - Influenza [Unknown]
